FAERS Safety Report 15429362 (Version 1)
Quarter: 2018Q3

REPORT INFORMATION
  Report Type: Spontaneous
  Country: US (occurrence: US)
  Receive Date: 20180920
  Receipt Date: 20180920
  Transmission Date: 20181010
  Serious: Yes (Life-Threatening)
  Sender: FDA-Public Use
  Company Number: None

PATIENT
  Age: 32 Year
  Sex: Female
  Weight: 97.2 kg

DRUGS (1)
  1. RIFAMPIN. [Suspect]
     Active Substance: RIFAMPIN
     Indication: TUBERCULOSIS
     Route: 048
     Dates: start: 20180912, end: 20180912

REACTIONS (11)
  - Rash generalised [None]
  - Chills [None]
  - Wheezing [None]
  - Headache [None]
  - Vision blurred [None]
  - Rash papular [None]
  - Dyspnoea [None]
  - Anaphylactic reaction [None]
  - Vomiting [None]
  - Nausea [None]
  - Pyrexia [None]

NARRATIVE: CASE EVENT DATE: 20180912
